FAERS Safety Report 5281290-2 (Version None)
Quarter: 2007Q1

REPORT INFORMATION
  Report Type: 
  Country: None (occurrence: None)
  Receive Date: 20061221
  Receipt Date: 20061016
  Transmission Date: 20070707
  Serious: No
  Sender: FDA-Public Use
  Company Number: SP00969

PATIENT
  Age: 53 Year
  Sex: Female
  Weight: 39.9165 kg

DRUGS (3)
  1. XIFAXAN [Suspect]
     Indication: BACTERIAL INFECTION
     Dosage: 200MG/BID, ORAL
     Route: 048
     Dates: start: 20060810, end: 20060812
  2. XIFAXAN [Suspect]
     Indication: GASTRIC INFECTION
     Dosage: 200MG/BID, ORAL
     Route: 048
     Dates: start: 20060810, end: 20060812
  3. KLONOPIN [Concomitant]

REACTIONS (6)
  - ABDOMINAL PAIN [None]
  - CONSTIPATION [None]
  - DRUG INEFFECTIVE FOR UNAPPROVED INDICATION [None]
  - FAECES HARD [None]
  - FLATULENCE [None]
  - FREQUENT BOWEL MOVEMENTS [None]
